FAERS Safety Report 5378174-8 (Version None)
Quarter: 2007Q3

REPORT INFORMATION
  Report Type: 
  Country: None (occurrence: None)
  Receive Date: 20070705
  Receipt Date: 20040305
  Transmission Date: 20080115
  Serious: Yes (Hospitalization)
  Sender: FDA-Public Use
  Company Number: US-JNJFOC-20070603268

PATIENT
  Sex: Male

DRUGS (6)
  1. PEPCID AKUT [Suspect]
     Route: 048
  2. PEPCID AKUT [Suspect]
     Indication: DRUG USE FOR UNKNOWN INDICATION
     Route: 048
  3. ACCUPRIL [Concomitant]
  4. PLAVIX [Concomitant]
  5. ZOCOR [Concomitant]
  6. ASPIRIN [Concomitant]

REACTIONS (2)
  - LOSS OF CONSCIOUSNESS [None]
  - PULSE ABSENT [None]
